FAERS Safety Report 21217630 (Version 5)
Quarter: 2023Q1

REPORT INFORMATION
  Report Type: Spontaneous
  Country: US (occurrence: US)
  Receive Date: 20220816
  Receipt Date: 20230203
  Transmission Date: 20230417
  Serious: Yes (Hospitalization, Other)
  Sender: FDA-Public Use
  Company Number: US-PFIZER INC-PV202200043568

PATIENT
  Age: 74 Year
  Sex: Female
  Weight: 88.9 kg

DRUGS (1)
  1. XELJANZ XR [Suspect]
     Active Substance: TOFACITINIB CITRATE
     Indication: Rheumatoid arthritis
     Dosage: 11 MG, DAILY (EVERY DAY)
     Dates: start: 2022, end: 2022

REACTIONS (4)
  - Cerebrovascular accident [Recovered/Resolved]
  - Speech disorder [Unknown]
  - Bone pain [Unknown]
  - Feeling abnormal [Recovered/Resolved]

NARRATIVE: CASE EVENT DATE: 20220505
